FAERS Safety Report 4504003-8 (Version None)
Quarter: 2004Q3

REPORT INFORMATION
  Report Type: 
  Country: None (occurrence: None)
  Receive Date: 20040927
  Receipt Date: 20040630
  Transmission Date: 20050211
  Serious: No
  Sender: FDA-Public Use
  Company Number: USA040771510

PATIENT
  Age: 5 Year
  Sex: Male
  Weight: 20 kg

DRUGS (1)
  1. STRATTERA [Suspect]
     Indication: AUTISM
     Dosage: 18 MG/1 DAY
     Dates: start: 20040626

REACTIONS (3)
  - DECREASED APPETITE [None]
  - DYSPHAGIA [None]
  - SOMNOLENCE [None]
